FAERS Safety Report 6961160-1 (Version None)
Quarter: 2010Q3

REPORT INFORMATION
  Report Type: 
  Country: None (occurrence: None)
  Receive Date: 20100901
  Receipt Date: 20100826
  Transmission Date: 20110219
  Serious: Yes (Hospitalization)
  Sender: FDA-Public Use
  Company Number: JP-BRISTOL-MYERS SQUIBB COMPANY-15225063

PATIENT
  Age: 44 Year
  Sex: Male
  Weight: 53 kg

DRUGS (14)
  1. CETUXIMAB [Suspect]
     Indication: GASTROOESOPHAGEAL CANCER
     Dosage: STRENGTH:5MG/ML;RECENT INF ON 27JUL10;TOTAL 7 INF
     Route: 042
     Dates: start: 20100614
  2. BRIPLATIN INJ [Suspect]
     Indication: GASTROOESOPHAGEAL CANCER
     Dosage: ON DAY 1 OF CYCLE;RECENT INF ON 27JUL10
     Route: 042
     Dates: start: 20100614
  3. CAPECITABINE [Suspect]
     Indication: GASTROOESOPHAGEAL CANCER
     Dosage: ON DAY 1 TO 15 TABS
     Route: 048
     Dates: start: 20100614, end: 20100729
  4. DICLOFENAC SODIUM [Concomitant]
     Route: 054
     Dates: start: 20100514, end: 20100604
  5. TEPRENONE [Concomitant]
     Indication: PROPHYLAXIS
     Route: 048
     Dates: start: 20100605
  6. OXYCODONE HCL [Concomitant]
     Dosage: 10MG FROM 06JUN10-11JUN10(5DAYS)
     Route: 048
     Dates: start: 20100605
  7. PROCHLORPERAZINE [Concomitant]
     Indication: PROPHYLAXIS
     Route: 048
     Dates: start: 20100606
  8. FERROUS SULFATE [Concomitant]
     Indication: PROPHYLAXIS
     Route: 048
     Dates: start: 20100607
  9. LANSOPRAZOLE [Concomitant]
     Indication: PROPHYLAXIS
     Dosage: 5JUN10-5JUN10:IV:60MG 6JUN10-8JUN10:IV:30MG
     Route: 048
     Dates: start: 20100609
  10. MAGNESIUM OXIDE [Concomitant]
     Route: 048
     Dates: start: 20100614
  11. HIRUDOID [Concomitant]
     Indication: PROPHYLAXIS
     Route: 061
     Dates: start: 20100614
  12. RETINOL [Concomitant]
     Indication: PROPHYLAXIS
     Route: 061
     Dates: start: 20100614
  13. PETROLATUM [Concomitant]
     Indication: PROPHYLAXIS
     Route: 061
     Dates: start: 20100614
  14. MELOXICAM [Concomitant]
     Indication: GASTROOESOPHAGEAL CANCER
     Route: 048
     Dates: start: 20100614

REACTIONS (1)
  - CEREBRAL INFARCTION [None]
